FAERS Safety Report 8859115 (Version 3)
Quarter: 2012Q4

REPORT INFORMATION
  Report Type: 
  Country: US (occurrence: US)
  Receive Date: 20121024
  Receipt Date: 20121120
  Transmission Date: 20130627
  Serious: Yes (Death, Hospitalization, Other)
  Sender: FDA-Public Use
  Company Number: US-PFIZER INC-2012261792

PATIENT
  Age: 59 Year
  Sex: Female
  Weight: 48.53 kg

DRUGS (1)
  1. DETROL LA [Suspect]
     Dosage: 4 mg, 1x/day
     Route: 048
     Dates: start: 20110812

REACTIONS (5)
  - Death [Fatal]
  - Pneumonia [Unknown]
  - Lung disorder [Unknown]
  - Metastases to lung [Unknown]
  - Pleural effusion [Unknown]
